FAERS Safety Report 4771216-X (Version None)
Quarter: 2005Q3

REPORT INFORMATION
  Report Type: 
  Country: None (occurrence: None)
  Receive Date: 20050912
  Receipt Date: 20050803
  Transmission Date: 20060218
  Serious: Yes (Death, Hospitalization)
  Sender: FDA-Public Use
  Company Number: M04-341-060

PATIENT
  Age: 75 Year
  Sex: Male
  Weight: 54 kg

DRUGS (13)
  1. VELCADE [Suspect]
     Indication: MULTIPLE MYELOMA
     Dosage: 2.00 MG, INTRAVENOUS; SEE IMAGE
     Route: 042
     Dates: start: 20030922, end: 20031024
  2. VELCADE [Suspect]
     Indication: MULTIPLE MYELOMA
     Dosage: 2.00 MG, INTRAVENOUS; SEE IMAGE
     Route: 042
     Dates: start: 20031125, end: 20040224
  3. DIGOXIN TAB [Concomitant]
  4. ENALAPRIL MALEATE [Concomitant]
  5. SPIRONOLACTONE TABLET [Concomitant]
  6. REPAGLINIDE TABLET [Concomitant]
  7. METFORMIN TABLET [Concomitant]
  8. VITAMIN B6 [Concomitant]
  9. GABAPENTIN [Concomitant]
  10. MULTI-VITAMINS [Concomitant]
  11. NITROFURANTOIN CAPSULE [Concomitant]
  12. DIPHENHYDRAMINE HCL [Concomitant]
  13. FUROSEMIDE [Concomitant]

REACTIONS (2)
  - CARDIAC ARREST [None]
  - FLUID RETENTION [None]
